FAERS Safety Report 15348695 (Version 1)
Quarter: 2018Q3

REPORT INFORMATION
  Report Type: Spontaneous
  Country: US (occurrence: US)
  Receive Date: 20180904
  Receipt Date: 20180904
  Transmission Date: 20181010
  Serious: No
  Sender: FDA-Public Use
  Company Number: US-MYLANLABS-2018M1064852

PATIENT
  Age: 55 Year
  Sex: Female

DRUGS (2)
  1. LISINOPRIL. [Concomitant]
     Active Substance: LISINOPRIL
     Indication: HYPERTENSION
     Dosage: 1 DF, QD
     Route: 048
  2. CORTIFOAM [Suspect]
     Active Substance: HYDROCORTISONE ACETATE
     Indication: COLITIS ULCERATIVE
     Dosage: 1 APPLICATION AEROSOL TWICE A DAY AS NEEDED
     Route: 054
     Dates: start: 2003

REACTIONS (3)
  - Expired product administered [Unknown]
  - No adverse event [Unknown]
  - Product leakage [Unknown]

NARRATIVE: CASE EVENT DATE: 201808
